FAERS Safety Report 7368989-9 (Version None)
Quarter: 2011Q1

REPORT INFORMATION
  Report Type: 
  Country: None (occurrence: None)
  Receive Date: 20110314
  Receipt Date: 20110225
  Transmission Date: 20110831
  Serious: Yes (Hospitalization)
  Sender: FDA-Public Use
  Company Number: AUR-APL-2011-00709

PATIENT
  Age: 63 Year
  Sex: Female

DRUGS (3)
  1. SULAMID [Concomitant]
  2. ATENOLOL [Suspect]
     Indication: PALPITATIONS
     Dosage: 25MG-DAILY-ORAL
     Route: 048
     Dates: start: 20101014, end: 20101014
  3. EUTIROX [Concomitant]

REACTIONS (2)
  - TREMOR [None]
  - VERTIGO [None]
